FAERS Safety Report 8299292-0 (Version None)
Quarter: 2012Q2

REPORT INFORMATION
  Report Type: 
  Country: None (occurrence: None)
  Receive Date: 20120419
  Receipt Date: 20120416
  Transmission Date: 20120825
  Serious: Yes (Hospitalization, Other)
  Sender: FDA-Public Use
  Company Number: US-BAYER-2012-025619

PATIENT
  Age: 58 Year
  Sex: Female
  Weight: 53.515 kg

DRUGS (7)
  1. BETASERON [Suspect]
     Indication: MULTIPLE SCLEROSIS
     Dosage: 0.3 MG, QOD
     Dates: end: 20110901
  2. GABAPENTIN [Concomitant]
     Dosage: 400 MG, TID
  3. REBIF [Concomitant]
     Indication: MULTIPLE SCLEROSIS
     Dosage: 44MCG/0.5ML TIW
     Dates: start: 20120301
  4. NORTRIPTYLINE HCL [Concomitant]
     Dosage: 1 DF, QD
  5. AMLODIPINE [Concomitant]
     Dosage: 1 DF, QD
  6. BACLOFEN [Concomitant]
     Dosage: 10 MG, TID
  7. LAMOTRGINE [Concomitant]
     Dosage: 200 MG, BID

REACTIONS (3)
  - MEMORY IMPAIRMENT [None]
  - TRIGEMINAL NEURALGIA [None]
  - COGNITIVE DISORDER [None]
